FAERS Safety Report 8311125-2 (Version None)
Quarter: 2012Q2

REPORT INFORMATION
  Report Type: 
  Country: None (occurrence: None)
  Receive Date: 20120423
  Receipt Date: 20120415
  Transmission Date: 20120825
  Serious: Yes (Hospitalization)
  Sender: FDA-Public Use
  Company Number: 2012SP020520

PATIENT
  Age: 51 Year
  Sex: Female
  Weight: 92 kg

DRUGS (3)
  1. VICTRELIS [Suspect]
     Indication: HEPATITIS C
     Dosage: 2400 MG;;PO
     Route: 048
     Dates: start: 20120315
  2. PEGINTERFERON ALFA-2A [Suspect]
     Indication: HEPATITIS C
     Dosage: 180 MCG;QW;SC
     Route: 058
     Dates: start: 20120216
  3. COPEGUS [Suspect]
     Indication: HEPATITIS C
     Dosage: 1000 MG;;PO
     Route: 048
     Dates: start: 20120216

REACTIONS (2)
  - ANAL ABSCESS [None]
  - WHITE BLOOD CELL COUNT DECREASED [None]
